FAERS Safety Report 11183735 (Version 2)
Quarter: 2015Q3

REPORT INFORMATION
  Report Type: Report from Study
  Country: US (occurrence: US)
  Receive Date: 20150612
  Receipt Date: 20150911
  Transmission Date: 20151125
  Serious: Yes (Other)
  Sender: FDA-Public Use
  Company Number: US-ROCHE-1590056

PATIENT
  Age: 57 Year
  Sex: Female

DRUGS (3)
  1. CISPLATIN. [Suspect]
     Active Substance: CISPLATIN
     Indication: CERVIX CARCINOMA
     Route: 065
  2. BEVACIZUMAB [Suspect]
     Active Substance: BEVACIZUMAB
     Indication: CERVIX CARCINOMA
     Dosage: CYCLE 21 DAYS
     Route: 065
     Dates: start: 20091211, end: 20101013
  3. TAXOL [Suspect]
     Active Substance: PACLITAXEL
     Indication: CERVIX CARCINOMA
     Route: 042

REACTIONS (4)
  - Anaemia [Unknown]
  - Anaemia [Unknown]
  - Acute kidney injury [Unknown]
  - Abscess limb [Unknown]

NARRATIVE: CASE EVENT DATE: 20101012
